FAERS Safety Report 8092038-0 (Version None)
Quarter: 2011Q4

REPORT INFORMATION
  Report Type: 
  Country: None (occurrence: None)
  Receive Date: 20111221
  Receipt Date: 20110901
  Transmission Date: 20120403
  Serious: Yes (Hospitalization, Other)
  Sender: FDA-Public Use
  Company Number: PHHY2011US44130

PATIENT
  Age: 52 Year
  Sex: Male
  Weight: 63.9 kg

DRUGS (2)
  1. EXJADE [Suspect]
     Indication: IRON OVERLOAD
     Dosage: 1000 MG, DAILY, ORAL
     Route: 048
     Dates: start: 20101229
  2. EXJADE [Suspect]
     Indication: IRON OVERLOAD
     Dosage: 1000 MG, DAILY, ORAL
     Route: 048
     Dates: start: 20101201

REACTIONS (5)
  - SICKLE CELL ANAEMIA WITH CRISIS [None]
  - SOMNOLENCE [None]
  - DIARRHOEA [None]
  - OEDEMA PERIPHERAL [None]
  - FATIGUE [None]
